FAERS Safety Report 18156518 (Version 3)
Quarter: 2020Q3

REPORT INFORMATION
  Report Type: Spontaneous
  Country: US (occurrence: US)
  Receive Date: 20200817
  Receipt Date: 20200820
  Transmission Date: 20201103
  Serious: No
  Sender: FDA-Public Use
  Company Number: US-PFIZER INC-2020317548

PATIENT
  Sex: Male

DRUGS (1)
  1. ADVIL PM [Suspect]
     Active Substance: DIPHENHYDRAMINE CITRATE\IBUPROFEN
     Dosage: UNK

REACTIONS (7)
  - Hair disorder [Unknown]
  - Insomnia [Unknown]
  - Expired product administered [Unknown]
  - Irritability [Unknown]
  - Nightmare [Unknown]
  - Pruritus [Unknown]
  - Pain of skin [Unknown]
